FAERS Safety Report 7606663-1 (Version None)
Quarter: 2011Q3

REPORT INFORMATION
  Report Type: 
  Country: None (occurrence: None)
  Receive Date: 20110713
  Receipt Date: 20110712
  Transmission Date: 20111222
  Serious: Yes (Death, Hospitalization, Other)
  Sender: FDA-Public Use
  Company Number: GB-ROCHE-728786

PATIENT
  Sex: Female

DRUGS (11)
  1. LISINOPRIL [Concomitant]
  2. WARFARIN SODIUM [Concomitant]
  3. SIMVASTATIN [Concomitant]
  4. TIOTROPIUM [Concomitant]
  5. IBANDRONATE SODIUM [Suspect]
     Route: 065
  6. FUROSEMIDE [Concomitant]
  7. FLUOXETINE [Concomitant]
  8. RANIBIZUMAB [Suspect]
     Dosage: UNK
     Route: 031
     Dates: start: 20090806, end: 20100214
  9. DIGOXIN [Concomitant]
  10. VENTOLIN HFA [Concomitant]
  11. ADCAL D3 [Concomitant]

REACTIONS (5)
  - CEREBRAL HAEMORRHAGE [None]
  - DIARRHOEA [None]
  - FALL [None]
  - VOMITING [None]
  - NEOPLASM MALIGNANT [None]
